FAERS Safety Report 6045720-0 (Version None)
Quarter: 2009Q1

REPORT INFORMATION
  Report Type: 
  Country: None (occurrence: None)
  Receive Date: 20090121
  Receipt Date: 20090115
  Transmission Date: 20090719
  Serious: Yes (Other)
  Sender: FDA-Public Use
  Company Number: CA-ASTRAZENECA-2009UW01393

PATIENT
  Sex: Male

DRUGS (7)
  1. CASODEX [Suspect]
     Dosage: 50MG
     Route: 048
  2. AVODART [Suspect]
     Dosage: 0.5MG
     Route: 048
  3. ANTIHYPERCHOLESTEROLAEMIC [Concomitant]
  4. ASPIRIN [Concomitant]
  5. DIURETIC [Concomitant]
  6. NIFEDIPINE [Concomitant]
  7. RAMIPRIL [Concomitant]

REACTIONS (3)
  - DEPRESSED MOOD [None]
  - HAEMORRHAGIC DIATHESIS [None]
  - WOUND HAEMORRHAGE [None]
